FAERS Safety Report 20361721 (Version 1)
Quarter: 2022Q1

REPORT INFORMATION
  Report Type: Spontaneous
  Country: CN (occurrence: None)
  Receive Date: 20220121
  Receipt Date: 20220121
  Transmission Date: 20220423
  Serious: Yes (Hospitalization)
  Sender: FDA-Public Use
  Company Number: 2022A018392

PATIENT
  Age: 68 Year
  Sex: Male
  Weight: 62 kg

DRUGS (2)
  1. IMFINZI [Suspect]
     Active Substance: DURVALUMAB
     Indication: Non-small cell lung cancer stage III
     Dosage: 620 MG/ CYCLE
     Route: 042
     Dates: start: 20210305, end: 20210331
  2. LENVATINIB [Concomitant]
     Active Substance: LENVATINIB

REACTIONS (1)
  - Venous thrombosis limb [Recovered/Resolved]

NARRATIVE: CASE EVENT DATE: 20210501
